FAERS Safety Report 4358454-5 (Version None)
Quarter: 2004Q2

REPORT INFORMATION
  Report Type: 
  Country: None (occurrence: None)
  Receive Date: 20040511
  Receipt Date: 20040429
  Transmission Date: 20050107
  Serious: Yes (Hospitalization)
  Sender: FDA-Public Use
  Company Number: US-JNJFOC-20040500255

PATIENT
  Age: 61 Year
  Sex: Female
  Weight: 76.6579 kg

DRUGS (10)
  1. TOPAMAX [Suspect]
     Indication: TARSAL TUNNEL SYNDROME
     Dosage: 400 MG, 2 IN 1 DAY, ORAL
     Route: 048
     Dates: start: 20030901
  2. DURAGESIC [Suspect]
     Indication: PAIN
     Dosage: TRANSDERMAL
     Route: 062
  3. NEXIUM [Concomitant]
  4. K-DUR 10 [Concomitant]
  5. SINGULAIR [Concomitant]
  6. MAXAIR [Concomitant]
  7. FLONASE [Concomitant]
  8. AMBIENT (ZOLPIDEM TARTRATE) [Concomitant]
  9. FIBERCOM (POLYCARBOPHIL CALCIUM) [Concomitant]
  10. RAMIPRIL [Concomitant]

REACTIONS (6)
  - AGGRESSION [None]
  - ALOPECIA [None]
  - DISTURBANCE IN ATTENTION [None]
  - DIVERTICULITIS [None]
  - MEMORY IMPAIRMENT [None]
  - TREMOR [None]
